FAERS Safety Report 8859119 (Version 2)
Quarter: 2012Q4

REPORT INFORMATION
  Report Type: 
  Country: US (occurrence: US)
  Receive Date: 20121024
  Receipt Date: 20121227
  Transmission Date: 20130627
  Serious: Yes (Hospitalization)
  Sender: FDA-Public Use
  Company Number: US-SHIRE-ALL1-2012-05023

PATIENT
  Sex: Female

DRUGS (1)
  1. 426 (MIDODRINE) [Suspect]
     Indication: HYPOTENSION
     Dosage: 2.5 mg, 3x/day:tid
     Route: 048
     Dates: start: 20100708, end: 20100715

REACTIONS (1)
  - Stress cardiomyopathy [Recovered/Resolved]
